FAERS Safety Report 7388102-1 (Version None)
Quarter: 2011Q2

REPORT INFORMATION
  Report Type: 
  Country: None (occurrence: None)
  Receive Date: 20110401
  Receipt Date: 20110318
  Transmission Date: 20111010
  Serious: Yes (Hospitalization)
  Sender: FDA-Public Use
  Company Number: US-ELI_LILLY_AND_COMPANY-US201102006548

PATIENT
  Sex: Female
  Weight: 55.329 kg

DRUGS (12)
  1. CALCIUM [Concomitant]
  2. LYRICA [Concomitant]
  3. LORTAB [Concomitant]
  4. FORTEO [Suspect]
     Dosage: 20 UG, QD
     Route: 058
     Dates: start: 20110210
  5. SULINDAC [Concomitant]
  6. LOVAZA [Concomitant]
  7. ELAVIL [Concomitant]
  8. VITAMIN C + E [Concomitant]
  9. ZOLOFT [Concomitant]
  10. VITAMIN D [Concomitant]
  11. FORTEO [Suspect]
     Dosage: 20 UG, DAILY (1/D)
     Route: 058
     Dates: start: 20100101, end: 20110206
  12. MULTI-VITAMIN [Concomitant]

REACTIONS (8)
  - CONTUSION [None]
  - DIZZINESS [None]
  - DEHYDRATION [None]
  - URINARY TRACT INFECTION [None]
  - PAIN [None]
  - PRESYNCOPE [None]
  - MALNUTRITION [None]
  - FALL [None]
